FAERS Safety Report 22124804 (Version 2)
Quarter: 2023Q2

REPORT INFORMATION
  Report Type: Spontaneous
  Country: EG (occurrence: EG)
  Receive Date: 20230322
  Receipt Date: 20230403
  Transmission Date: 20230721
  Serious: Yes (Hospitalization, Other)
  Sender: FDA-Public Use
  Company Number: EG-NOVOPROD-1038249

PATIENT
  Age: 53 Year
  Sex: Male
  Weight: 70 kg

DRUGS (9)
  1. INSULIN HUMAN [Suspect]
     Active Substance: INSULIN HUMAN
     Indication: Type 2 diabetes mellitus
     Dosage: 45U+40U, SOMETIMES 20 IU
     Route: 058
     Dates: start: 2014
  2. INSULIN HUMAN [Suspect]
     Active Substance: INSULIN HUMAN
     Dosage: 25U-15U
     Route: 058
     Dates: end: 20230306
  3. BISOPROLOL FUMARATE [Concomitant]
     Active Substance: BISOPROLOL FUMARATE
     Indication: Hypertension
     Dosage: 1 TAB/DAY (5 MG PLUS)
     Dates: start: 2016, end: 20230311
  4. SUGARLO PLUS [Concomitant]
     Indication: Type 2 diabetes mellitus
     Dosage: 50 MG, QD (1 TAB./BREAKFAST + 1 TAB./LUNCH)
  5. .ALPHA.-LIPOIC ACID [Concomitant]
     Active Substance: .ALPHA.-LIPOIC ACID
     Indication: Product used for unknown indication
     Dosage: 600 MG
  6. NEUROGLOPENTIN [Concomitant]
     Indication: Product used for unknown indication
     Dosage: 300 MG
  7. TAMSULIN D [Concomitant]
     Indication: Prophylaxis
     Dosage: UNK
  8. BENFOTIAMINE\CYANOCOBALAMIN\PYRIDOXINE HYDROCHLORIDE [Concomitant]
     Active Substance: BENFOTIAMINE\CYANOCOBALAMIN\PYRIDOXINE HYDROCHLORIDE
     Indication: Product used for unknown indication
     Dosage: UNK
  9. ERASTAPEX PLUS [Concomitant]
     Indication: Hypertension
     Dosage: UNK

REACTIONS (7)
  - Accident [Recovered/Resolved]
  - Ligament sprain [Unknown]
  - Hyperglycaemia [Recovering/Resolving]
  - Drug ineffective [Unknown]
  - Ligament disorder [Not Recovered/Not Resolved]
  - Visual impairment [Unknown]
  - Irritable bowel syndrome [Unknown]

NARRATIVE: CASE EVENT DATE: 20220101
